FAERS Safety Report 6691447-1 (Version None)
Quarter: 2010Q2

REPORT INFORMATION
  Report Type: 
  Country: None (occurrence: None)
  Receive Date: 20100422
  Receipt Date: 20100408
  Transmission Date: 20101027
  Serious: Yes (Other)
  Sender: FDA-Public Use
  Company Number: NL-BAYER-201021497GPV

PATIENT

DRUGS (1)
  1. SORAFENIB [Suspect]
     Indication: HEPATIC NEOPLASM MALIGNANT

REACTIONS (2)
  - HYPOTHYROIDISM [None]
  - THYROIDITIS [None]
